FAERS Safety Report 7785267-4 (Version None)
Quarter: 2011Q3

REPORT INFORMATION
  Report Type: 
  Country: None (occurrence: None)
  Receive Date: 20110929
  Receipt Date: 20110929
  Transmission Date: 20111222
  Serious: Yes (Hospitalization, Other)
  Sender: FDA-Public Use
  Company Number: PHHO2010BE19702

PATIENT
  Sex: Male
  Weight: 19.8 kg

DRUGS (6)
  1. OMEPRAZOLE [Concomitant]
  2. ILARIS [Suspect]
     Dosage: 79.2 MG, ONCE/SINGLE
     Dates: start: 20101222
  3. NO TREATMENT RECEIVED [Suspect]
     Indication: JUVENILE ARTHRITIS
     Dosage: NO TREATMENT
  4. ILARIS [Suspect]
     Indication: JUVENILE ARTHRITIS
     Dosage: 77.2 MG, ONCE/SINGLE
     Dates: start: 20101124
  5. INDOMETHACIN [Suspect]
     Dosage: UNK
     Dates: end: 20101225
  6. MEDROL [Concomitant]

REACTIONS (13)
  - ABDOMINAL PAIN [None]
  - SWELLING [None]
  - HEPATITIS [None]
  - PAIN [None]
  - INFLAMMATION [None]
  - ERYTHEMA [None]
  - PYREXIA [None]
  - GASTRITIS [None]
  - ABDOMINAL PAIN UPPER [None]
  - FATIGUE [None]
  - INJECTION SITE REACTION [None]
  - HEPATIC ENZYME INCREASED [None]
  - MALAISE [None]
